FAERS Safety Report 12945646 (Version 1)
Quarter: 2016Q4

REPORT INFORMATION
  Report Type: Spontaneous
  Country: CN (occurrence: CN)
  Receive Date: 20161116
  Receipt Date: 20161116
  Transmission Date: 20170207
  Serious: Yes (Other)
  Sender: FDA-Public Use
  Company Number: CN-BAYER-2016-215995

PATIENT
  Age: 71 Year
  Sex: Female
  Weight: 52 kg

DRUGS (11)
  1. BAYASPIRIN [Suspect]
     Active Substance: ASPIRIN
     Indication: THROMBOSIS
     Dosage: 100 MG, QD
     Route: 048
     Dates: start: 20160908, end: 20160927
  2. ALPROSTADIL. [Suspect]
     Active Substance: ALPROSTADIL
     Indication: CARDIOVASCULAR DISORDER
     Dosage: 20 ?G, QD
     Route: 041
     Dates: start: 20160908, end: 20160914
  3. CEFOPERAZONE SODIUM [Concomitant]
     Active Substance: CEFOPERAZONE SODIUM
     Indication: INFECTION
     Dosage: 2 G, BID
     Route: 041
     Dates: start: 20160910, end: 20160924
  4. REPAGLINIDE. [Concomitant]
     Active Substance: REPAGLINIDE
     Indication: DIABETES MELLITUS
     Dosage: 1 MG, TID
     Route: 048
     Dates: start: 20160909, end: 20160918
  5. SODIUM CHLORIDE. [Concomitant]
     Active Substance: SODIUM CHLORIDE
     Indication: SOLVENT SENSITIVITY
     Dosage: 100 ML, QD
     Route: 041
     Dates: start: 20160915, end: 20160919
  6. SODIUM CHLORIDE. [Concomitant]
     Active Substance: SODIUM CHLORIDE
     Indication: SOLVENT SENSITIVITY
     Dosage: 100 ML, BID
     Route: 041
     Dates: start: 20160910, end: 20160924
  7. TRIMETAZIDINE [Concomitant]
     Active Substance: TRIMETAZIDINE
     Indication: THERAPEUTIC PROCEDURE
     Dosage: 20 MG, TID
     Route: 048
     Dates: start: 20160908, end: 20160927
  8. TAZOBACTAM SODIUM [Concomitant]
     Active Substance: TAZOBACTAM SODIUM
     Indication: INFECTION
     Dosage: UNK
     Dates: start: 20160910, end: 20161024
  9. LIPITOR [Concomitant]
     Active Substance: ATORVASTATIN CALCIUM
     Indication: PROSTHETIC VESSEL REMOVAL
     Dosage: 20 MG, QD
     Route: 048
     Dates: start: 20160908, end: 20160927
  10. SODIUM CHLORIDE. [Concomitant]
     Active Substance: SODIUM CHLORIDE
     Indication: SOLVENT SENSITIVITY
     Dosage: 100 ML, QD
     Route: 041
     Dates: start: 20160908, end: 20160914
  11. ALPROSTADIL. [Suspect]
     Active Substance: ALPROSTADIL
     Indication: CARDIOVASCULAR DISORDER
     Dosage: 10 ?G, QD
     Route: 041
     Dates: start: 20160915, end: 20160919

REACTIONS (2)
  - Duodenal ulcer [Recovering/Resolving]
  - Anaemia [Recovering/Resolving]

NARRATIVE: CASE EVENT DATE: 20160919
